FAERS Safety Report 20403194 (Version 1)
Quarter: 2022Q1

REPORT INFORMATION
  Report Type: Spontaneous
  Country: CA (occurrence: CA)
  Receive Date: 20220131
  Receipt Date: 20220131
  Transmission Date: 20220423
  Serious: Yes (Other)
  Sender: FDA-Public Use
  Company Number: None

PATIENT
  Age: 52 Year
  Sex: Male

DRUGS (5)
  1. CLOBAZAM [Suspect]
     Active Substance: CLOBAZAM
     Indication: Post-traumatic epilepsy
     Dosage: 2 EVERY 1 DAYS
  2. LEVETIRACETAM [Suspect]
     Active Substance: LEVETIRACETAM
     Indication: Post-traumatic epilepsy
     Dosage: 2 EVERY 1 DAYS
  3. GRANISETRON [Suspect]
     Active Substance: GRANISETRON
     Indication: Diarrhoea
     Dosage: 2 EVERY 1 DAYS
  4. OXITRIPTAN [Suspect]
     Active Substance: OXITRIPTAN
     Indication: Post-traumatic epilepsy
     Dosage: 3 EVERY 1 DAYS
  5. VALPROIC ACID [Suspect]
     Active Substance: VALPROIC ACID
     Indication: Post-traumatic epilepsy
     Dosage: 3 EVERY 1 DAYS

REACTIONS (4)
  - Condition aggravated [Unknown]
  - Myoclonus [Unknown]
  - Diarrhoea [Unknown]
  - Somnolence [Unknown]
